FAERS Safety Report 7492203-7 (Version None)
Quarter: 2011Q2

REPORT INFORMATION
  Report Type: 
  Country: None (occurrence: None)
  Receive Date: 20110519
  Receipt Date: 20101106
  Transmission Date: 20111010
  Serious: No
  Sender: FDA-Public Use
  Company Number: US-NOVEN-ALL1-2010-05853

PATIENT
  Sex: Male
  Weight: 21.315 kg

DRUGS (1)
  1. DAYTRANA [Suspect]
     Dosage: 20 MG, UNK(PATCH CUT IN HALF AND APPLIED DAILY)
     Route: 062
     Dates: start: 20101106

REACTIONS (6)
  - WRONG TECHNIQUE IN DRUG USAGE PROCESS [None]
  - APPLICATION SITE PAIN [None]
  - PRODUCT ADHESION ISSUE [None]
  - FALL [None]
  - PALLOR [None]
  - DRUG PRESCRIBING ERROR [None]
